FAERS Safety Report 12328787 (Version 1)
Quarter: 2016Q2

REPORT INFORMATION
  Report Type: Spontaneous
  Country: US (occurrence: US)
  Receive Date: 20160503
  Receipt Date: 20160503
  Transmission Date: 20160815
  Serious: No
  Sender: FDA-Public Use
  Company Number: US-BEH-2015050790

PATIENT
  Sex: Male
  Weight: 132 kg

DRUGS (36)
  1. RANITIDINE. [Concomitant]
     Active Substance: RANITIDINE
  2. IMITREX [Concomitant]
     Active Substance: SUMATRIPTAN SUCCINATE
  3. SPIRONOLACTONE. [Concomitant]
     Active Substance: SPIRONOLACTONE
  4. ZAFIRLUKAST. [Concomitant]
     Active Substance: ZAFIRLUKAST
  5. CYCLOBENZAPRINE [Concomitant]
     Active Substance: CYCLOBENZAPRINE
  6. LANTUS [Concomitant]
     Active Substance: INSULIN GLARGINE
  7. LEXAPRO [Concomitant]
     Active Substance: ESCITALOPRAM OXALATE
  8. MOBIC [Concomitant]
     Active Substance: MELOXICAM
  9. COUMADIN [Concomitant]
     Active Substance: WARFARIN SODIUM
  10. TRICOR [Concomitant]
     Active Substance: FENOFIBRATE
  11. LORAZEPAM. [Concomitant]
     Active Substance: LORAZEPAM
  12. AVAPRO [Concomitant]
     Active Substance: IRBESARTAN
  13. NOVOLOG [Concomitant]
     Active Substance: INSULIN ASPART
  14. FISH OIL [Concomitant]
     Active Substance: FISH OIL
  15. COLACE [Concomitant]
     Active Substance: DOCUSATE SODIUM
  16. XOPENEX HFA [Concomitant]
     Active Substance: LEVALBUTEROL TARTRATE
  17. HIZENTRA [Suspect]
     Active Substance: HUMAN IMMUNOGLOBULIN G
     Route: 058
  18. LMX [Concomitant]
     Active Substance: LIDOCAINE
  19. CARBAMAZEPINE. [Concomitant]
     Active Substance: CARBAMAZEPINE
  20. FENOFIBRATE. [Concomitant]
     Active Substance: FENOFIBRATE
  21. NORCO [Concomitant]
     Active Substance: ACETAMINOPHEN\HYDROCODONE BITARTRATE
  22. METFORMIN HCL [Concomitant]
     Active Substance: METFORMIN HYDROCHLORIDE
  23. GLYBURIDE METFORMIN [Concomitant]
  24. DILTIAZEM HYDROCHLORIDE EXTENDED RELEASE [Concomitant]
     Active Substance: DILTIAZEM HYDROCHLORIDE
  25. VITAMIN C [Concomitant]
     Active Substance: ASCORBIC ACID
  26. MULTIPLE VITAMINS [Concomitant]
     Active Substance: VITAMINS
  27. HIZENTRA [Suspect]
     Active Substance: HUMAN IMMUNOGLOBULIN G
     Route: 058
  28. DIPHENHYDRAMINE. [Concomitant]
     Active Substance: DIPHENHYDRAMINE
  29. TYLENOL WITH CODEINE [Concomitant]
     Active Substance: ACETAMINOPHEN\CODEINE PHOSPHATE
  30. LIPITOR [Concomitant]
     Active Substance: ATORVASTATIN CALCIUM
  31. ADVAIR HFA [Concomitant]
     Active Substance: FLUTICASONE PROPIONATE\SALMETEROL XINAFOATE
  32. HUMULIN NOS [Concomitant]
     Active Substance: INSULIN HUMAN
  33. HIZENTRA [Suspect]
     Active Substance: HUMAN IMMUNOGLOBULIN G
     Indication: IMMUNODEFICIENCY COMMON VARIABLE
     Route: 058
  34. EPIPEN [Concomitant]
     Active Substance: EPINEPHRINE
  35. METOPROLOL SUCCINATE ER [Concomitant]
     Active Substance: METOPROLOL SUCCINATE
  36. CVS OMEPRAZOLE DR [Concomitant]

REACTIONS (1)
  - Migraine [Unknown]
